FAERS Safety Report 23537858 (Version 1)
Quarter: 2024Q1

REPORT INFORMATION
  Report Type: Spontaneous
  Country: ES (occurrence: ES)
  Receive Date: 20240219
  Receipt Date: 20240219
  Transmission Date: 20240410
  Serious: Yes (Hospitalization, Other)
  Sender: FDA-Public Use
  Company Number: ES-EMA-DD-20240201-7482711-134828

PATIENT

DRUGS (5)
  1. LACOSAMIDE [Suspect]
     Active Substance: LACOSAMIDE
     Indication: Epilepsy
     Dosage: 200 MG 1-1-1 (4 YEARS )
     Route: 048
     Dates: start: 20180705, end: 20230309
  2. PANTOPRAZOLE [Suspect]
     Active Substance: PANTOPRAZOLE
     Indication: Product used for unknown indication
     Dosage: 40 MG 1-0-0 (6 YEARS)
     Route: 048
     Dates: start: 20160422, end: 20220315
  3. VALPROIC ACID [Suspect]
     Active Substance: VALPROIC ACID
     Indication: Epilepsy
     Dosage: 6 YEARS
     Route: 048
     Dates: start: 20160504
  4. FOLIC ACID [Concomitant]
     Active Substance: FOLIC ACID
     Indication: Product used for unknown indication
     Route: 065
  5. CLOBAZAM [Concomitant]
     Active Substance: CLOBAZAM
     Indication: Product used for unknown indication
     Route: 065

REACTIONS (2)
  - Pancreatitis acute [Recovered/Resolved]
  - Type IV hypersensitivity reaction [Recovering/Resolving]

NARRATIVE: CASE EVENT DATE: 20220414
